FAERS Safety Report 7774284-6 (Version None)
Quarter: 2011Q3

REPORT INFORMATION
  Report Type: 
  Country: None (occurrence: None)
  Receive Date: 20110923
  Receipt Date: 20110915
  Transmission Date: 20111222
  Serious: Yes (Other)
  Sender: FDA-Public Use
  Company Number: US-AMGEN-USASP2011047572

PATIENT
  Sex: Female

DRUGS (6)
  1. SYNTHROID [Concomitant]
  2. ENBREL [Suspect]
     Indication: RHEUMATOID ARTHRITIS
     Dosage: 50 MG, QWK
     Dates: start: 20090101, end: 20110913
  3. FOLIC ACID [Concomitant]
  4. METHOTREXATE [Concomitant]
  5. VITAMINS                           /00067501/ [Concomitant]
  6. LIPITOR [Concomitant]

REACTIONS (4)
  - INCREASED TENDENCY TO BRUISE [None]
  - ACOUSTIC NEUROMA [None]
  - BASAL CELL CARCINOMA [None]
  - INJECTION SITE HAEMATOMA [None]
